FAERS Safety Report 18991536 (Version 8)
Quarter: 2021Q4

REPORT INFORMATION
  Report Type: Report from Study
  Country: FR (occurrence: FR)
  Receive Date: 20210310
  Receipt Date: 20211110
  Transmission Date: 20220303
  Serious: Yes (Hospitalization)
  Sender: FDA-Public Use
  Company Number: FR-CC-90009-AML-002-4011001-20210304-0002SG

PATIENT
  Age: 73 Year
  Sex: Male
  Weight: 86 kg

DRUGS (11)
  1. INVESTIGATIONAL PRODUCT [Suspect]
     Active Substance: INVESTIGATIONAL PRODUCT
     Indication: Acute myeloid leukaemia
     Dosage: 3 MG X 1 X 1 DAYS
     Route: 042
     Dates: start: 20210222, end: 20210222
  2. AZACITIDINE [Suspect]
     Active Substance: AZACITIDINE
     Indication: Acute myeloid leukaemia
     Dosage: 149 MG X 1 X 1 DAYS
     Route: 058
     Dates: start: 20210219, end: 20210219
  3. VENETOCLAX [Suspect]
     Active Substance: VENETOCLAX
     Indication: Acute myeloid leukaemia
     Dosage: 100 MG X 1 X 1 DAYS
     Route: 048
     Dates: start: 20210219, end: 20210219
  4. LERCANDIPINE [Concomitant]
     Indication: Hypertension
     Dosage: 20 MG X 1 X 1 DAYS
     Route: 048
     Dates: end: 20210326
  5. CALCIDOSE [Concomitant]
     Indication: Prophylaxis
     Dosage: 500 MG X 3 X 1 DAYS
     Route: 048
     Dates: start: 20210218, end: 20210328
  6. TRIMEBUTINE MALEATE [Concomitant]
     Active Substance: TRIMEBUTINE MALEATE
     Indication: Prophylaxis
     Dosage: 50 MG X PRN
     Route: 042
     Dates: start: 20210225, end: 20210228
  7. FUROSEMIDE [Concomitant]
     Active Substance: FUROSEMIDE
     Indication: Prophylaxis
     Dosage: 20 MG X PRN
     Route: 048
     Dates: start: 20210223, end: 20210225
  8. LEUCOVORIN CALCIUM [Concomitant]
     Active Substance: LEUCOVORIN CALCIUM
     Indication: Prophylaxis
     Dosage: 5 MG X 1 X 1 WEEKS
     Route: 048
     Dates: start: 20210306
  9. ROCALTROL [Concomitant]
     Active Substance: CALCITRIOL
     Indication: Prophylaxis
     Dosage: 0.25 UG X 1 X 1 DAYS
     Route: 048
     Dates: start: 20210219, end: 20210328
  10. SPASFON [Concomitant]
     Indication: Prophylaxis
     Dosage: 40 MG X 6 X 1 DAYS
     Route: 042
     Dates: start: 20210224, end: 20210301
  11. CHOLECALCIFEROL [Concomitant]
     Active Substance: CHOLECALCIFEROL
     Indication: Prophylaxis
     Dosage: 80000 IU X 1 X 1 DAYS
     Route: 048
     Dates: start: 20210218, end: 20210218

REACTIONS (1)
  - Hypocalcaemia [Recovered/Resolved]

NARRATIVE: CASE EVENT DATE: 20210225
